FAERS Safety Report 23621431 (Version 2)
Quarter: 2024Q4

REPORT INFORMATION
  Report Type: Spontaneous
  Country: FR (occurrence: FR)
  Receive Date: 20240312
  Receipt Date: 20241126
  Transmission Date: 20250114
  Serious: Yes (Life-Threatening, Hospitalization, Other)
  Sender: AUROBINDO
  Company Number: FR-AFSSAPS-NT2024000139

PATIENT
  Age: 67 Year
  Sex: Male

DRUGS (3)
  1. MIANSERIN [Suspect]
     Active Substance: MIANSERIN
     Indication: Insomnia
     Dosage: UNK (10 MG THEN 20 MG, THEN SINCE 11/2023: 30 MG/ DAY)
     Route: 048
     Dates: start: 20230721
  2. MIANSERIN [Suspect]
     Active Substance: MIANSERIN
     Indication: Anxiety
  3. LEVETIRACETAM [Suspect]
     Active Substance: LEVETIRACETAM
     Indication: Seizure prophylaxis
     Dosage: UNK (500 MG MORNING AND EVENING, THEN FROM 21/07/2023, 250 MG MORINING AND EVENING)
     Route: 048
     Dates: start: 20210204

REACTIONS (1)
  - Hepatic encephalopathy [Recovered/Resolved]

NARRATIVE: CASE EVENT DATE: 20210227
